FAERS Safety Report 11314049 (Version 1)
Quarter: 2015Q3

REPORT INFORMATION
  Report Type: Spontaneous
  Country: US (occurrence: US)
  Receive Date: 20150727
  Receipt Date: 20150727
  Transmission Date: 20151125
  Serious: No
  Sender: FDA-Public Use
  Company Number: US-009507513-1507USA009181

PATIENT
  Age: 21 Year
  Sex: Female
  Weight: 85.26 kg

DRUGS (1)
  1. NEXPLANON [Suspect]
     Active Substance: ETONOGESTREL
     Indication: CONTRACEPTION
     Dosage: UNK, EVERY 3 YEARS
     Dates: start: 20130508

REACTIONS (5)
  - Hypomenorrhoea [Unknown]
  - Menstruation irregular [Unknown]
  - Pain in extremity [Unknown]
  - Expired device used [Unknown]
  - Menorrhagia [Unknown]

NARRATIVE: CASE EVENT DATE: 201503
